FAERS Safety Report 9850315 (Version 1)
Quarter: 2013Q4

REPORT INFORMATION
  Report Type: Spontaneous
  Country: US (occurrence: None)
  Receive Date: 20131226
  Receipt Date: 20131226
  Transmission Date: 20140711
  Serious: Yes (Other)
  Sender: FDA-Public Use
  Company Number: PHEH2012US024717

PATIENT
  Age: 74 Year
  Sex: Female

DRUGS (9)
  1. DIOVAN [Suspect]
  2. ANTIHYPERTENSIVE DRUGS (NO INGREDIENTS/SUBSTANCES) [Suspect]
  3. LEVOTHYROXINE (LEVOTHYROXINE) [Concomitant]
  4. METOPROLOL (METOPROLOL) [Concomitant]
  5. GLYBURIDE (GLIBENCLAMIDE) [Concomitant]
  6. DOXAZOSIN (DOXAZOSIN) [Concomitant]
  7. METFORMIN (METFORMIN) [Concomitant]
  8. TRADJENTA (LINAGLIPTIN) [Concomitant]
  9. HYDROCHLOROTHIAZIDE (HYDROCHLOROTHIAZIDE) [Concomitant]

REACTIONS (2)
  - Blood pressure increased [None]
  - Dyspnoea [None]
